FAERS Safety Report 8601507 (Version 4)
Quarter: 2012Q4

REPORT INFORMATION
  Report Type: Report from Study
  Country: KR (occurrence: KR)
  Receive Date: 20120606
  Receipt Date: 20120829
  Transmission Date: 20130627
  Serious: Yes (Death, Hospitalization)
  Sender: FDA-Public Use
  Company Number: KR-BRISTOL-MYERS SQUIBB COMPANY-16603557

PATIENT
  Age: 68 Year
  Sex: Male
  Weight: 62 kg

DRUGS (3)
  1. CISPLATIN [Suspect]
     Indication: NON-SMALL CELL LUNG CANCER
     Dosage: Inf:6,Last inf on 23Feb2012,Admini until cyle6+ thn discontinued
     Route: 042
     Dates: start: 20111103
  2. NECITUMUMAB [Suspect]
     Indication: NON-SMALL CELL LUNG CANCER
     Dosage: Liq,Lst inf:25Apr12,Inf:18,Ery 21 days/cyle,Intrptd:2May2012.Admini until cyle6+ thn discontinued
     Route: 042
     Dates: start: 20111103, end: 20120425
  3. GEMCITABINE HCL [Suspect]
     Indication: NON-SMALL CELL LUNG CANCER
     Dosage: Inf:10
Last inf on 02Mar2012
Every 21 days/cycle
     Route: 042
     Dates: start: 20111103

REACTIONS (2)
  - Interstitial lung disease [Fatal]
  - Pneumonia [Fatal]
